FAERS Safety Report 26085090 (Version 1)
Quarter: 2025Q4

REPORT INFORMATION
  Report Type: Spontaneous
  Country: US (occurrence: US)
  Receive Date: 20251125
  Receipt Date: 20251125
  Transmission Date: 20260118
  Serious: No
  Sender: BAUSCH AND LOMB
  Company Number: US-BAUSCHBL-2025BNL032274

PATIENT
  Age: 87 Year
  Sex: Female

DRUGS (2)
  1. HYDROCORTISONE\NEOMYCIN SULFATE\POLYMYXIN B SULFATE [Suspect]
     Active Substance: HYDROCORTISONE\NEOMYCIN SULFATE\POLYMYXIN B SULFATE
     Indication: Ear pain
     Dosage: ADMINISTER 2 DOSES (ONE DOSE IN THE EARLY AFTERNOON AND THEN ANOTHER DOSE WHEN SHE WENT TO BED)
     Route: 001
     Dates: start: 20251114
  2. HYDROCORTISONE\NEOMYCIN SULFATE\POLYMYXIN B SULFATE [Suspect]
     Active Substance: HYDROCORTISONE\NEOMYCIN SULFATE\POLYMYXIN B SULFATE
     Dosage: 4 GTT TID (ADMINISTER 4 DROPS INTO THE LEFT EAR 3 TIMES A DAY)
     Route: 001
     Dates: start: 20251115, end: 20251116

REACTIONS (2)
  - Ear discomfort [Unknown]
  - Ear pain [Recovered/Resolved]

NARRATIVE: CASE EVENT DATE: 20251116
